FAERS Safety Report 11636204 (Version 2)
Quarter: 2015Q4

REPORT INFORMATION
  Report Type: Spontaneous
  Country: JP (occurrence: JP)
  Receive Date: 20151016
  Receipt Date: 20151026
  Transmission Date: 20160304
  Serious: Yes (Hospitalization)
  Sender: FDA-Public Use
  Company Number: JP-009507513-1510JPN000369

PATIENT
  Age: 85 Year
  Sex: Female

DRUGS (5)
  1. BELSOMRA [Suspect]
     Active Substance: SUVOREXANT
     Dosage: 15 MG, ONCE A DAY BEFORE BED
     Route: 048
     Dates: start: 201505, end: 20150905
  2. BELSOMRA [Suspect]
     Active Substance: SUVOREXANT
     Dosage: 15 MG, ONCE A DAY AFTER SUPPER
     Route: 048
     Dates: start: 20150906
  3. JZOLOFT [Concomitant]
     Active Substance: SERTRALINE HYDROCHLORIDE
     Dosage: 25 MG, BEFORE BED, FORMULATION: POR (PERORAL PREPARATIONS)
     Route: 048
     Dates: start: 201505
  4. DOGMATYL [Concomitant]
     Active Substance: SULPIRIDE
     Dosage: TOTAL DAILY DOSE 100MG, DIVIDED DOSE, FREQUENCY UNKNOWN
     Route: 065
  5. ELENTAL [Concomitant]
     Active Substance: AMINO ACIDS\CARBOHYDRATES\MINERALS\SOYBEAN OIL\VITAMINS
     Dosage: DAILY DOSAGE UNKNOWN
     Route: 065

REACTIONS (3)
  - Somnolence [Unknown]
  - Inappropriate schedule of drug administration [Unknown]
  - Adverse event [Unknown]

NARRATIVE: CASE EVENT DATE: 2015
